FAERS Safety Report 5751132-7 (Version None)
Quarter: 2008Q2

REPORT INFORMATION
  Report Type: 
  Country: None (occurrence: None)
  Receive Date: 20080528
  Receipt Date: 20080515
  Transmission Date: 20081010
  Serious: Yes (Hospitalization)
  Sender: FDA-Public Use
  Company Number: NL-ELI_LILLY_AND_COMPANY-NL200805003194

PATIENT
  Sex: Female
  Weight: 66 kg

DRUGS (6)
  1. HUMATROPE [Suspect]
     Indication: GROWTH HORMONE DEFICIENCY
  2. HYDROCORTISONE [Concomitant]
     Indication: ADRENAL INSUFFICIENCY
     Dosage: UNK, UNKNOWN
     Route: 065
     Dates: start: 19970101
  3. THYRAX [Concomitant]
     Indication: SECONDARY HYPOTHYROIDISM
     Dosage: UNK, UNKNOWN
     Route: 065
     Dates: start: 19970101
  4. ZOCOR [Concomitant]
     Indication: HYPERCHOLESTEROLAEMIA
     Dosage: UNK, UNKNOWN
     Route: 065
     Dates: start: 19970101
  5. CAPOZIDE [Concomitant]
     Indication: HYPERTENSION
     Dosage: UNK, UNKNOWN
     Route: 065
     Dates: start: 20000101
  6. NORVASC [Concomitant]
     Indication: HYPERTENSION
     Dosage: UNK, UNKNOWN
     Route: 065
     Dates: start: 20040101

REACTIONS (2)
  - ADRENAL INSUFFICIENCY [None]
  - DIARRHOEA [None]
